FAERS Safety Report 24171266 (Version 1)
Quarter: 2024Q3

REPORT INFORMATION
  Report Type: Report from Study
  Country: US (occurrence: US)
  Receive Date: 20240805
  Receipt Date: 20240805
  Transmission Date: 20241017
  Serious: No
  Sender: RANBAXY
  Company Number: US-SUN PHARMACEUTICAL INDUSTRIES LTD-2020R1-234421

PATIENT
  Sex: Male

DRUGS (2)
  1. SONIDEGIB [Suspect]
     Active Substance: SONIDEGIB
     Indication: Product used for unknown indication
     Dosage: UNK, DAILY, ON AN EMPTY STOMACH 2 HOURS AFTER MEAL OR BEFORE 1 HOUR WITH 6 REFILLS
     Route: 048
     Dates: end: 202008
  2. SONIDEGIB [Suspect]
     Active Substance: SONIDEGIB
     Dosage: UNK, DAILY, ON AN EMPTY STOMACH 2 HOURS AFTER MEAL OR BEFORE 1 HOUR WITH 6 REFILLS
     Route: 048
     Dates: start: 202201

REACTIONS (3)
  - Influenza [Unknown]
  - Product dose omission issue [Unknown]
  - Product use issue [Unknown]
